FAERS Safety Report 10350906 (Version 1)
Quarter: 2014Q3

REPORT INFORMATION
  Report Type: Spontaneous
  Country: US (occurrence: US)
  Receive Date: 20140730
  Receipt Date: 20140730
  Transmission Date: 20150326
  Serious: No
  Sender: FDA-Public Use
  Company Number: US-PFIZER INC-2014209977

PATIENT
  Age: 83 Year
  Sex: Female

DRUGS (5)
  1. LEVOMICIN [Suspect]
     Active Substance: CHLORAMPHENICOL
     Dosage: UNK
  2. LOPID [Suspect]
     Active Substance: GEMFIBROZIL
     Dosage: UNK
  3. DOXYCYCLINE CALCIUM [Suspect]
     Active Substance: DOXYCYCLINE CALCIUM
     Dosage: UNK
  4. LEVAQUIN [Suspect]
     Active Substance: LEVOFLOXACIN
     Dosage: UNK
  5. BIAXIN [Suspect]
     Active Substance: CLARITHROMYCIN
     Dosage: UNK

REACTIONS (1)
  - Drug hypersensitivity [Unknown]
